FAERS Safety Report 5609630-2 (Version None)
Quarter: 2008Q1

REPORT INFORMATION
  Report Type: 
  Country: None (occurrence: None)
  Receive Date: 20080131
  Receipt Date: 20080119
  Transmission Date: 20080703
  Serious: Yes (Hospitalization, Other)
  Sender: FDA-Public Use
  Company Number: US-PFIZER INC-2007072536

PATIENT
  Age: 67 Year
  Sex: Female

DRUGS (19)
  1. FLAGYL [Suspect]
     Indication: DIVERTICULITIS
  2. CLONAZEPAM [Suspect]
     Indication: ANXIETY
  3. CLONAZEPAM [Suspect]
     Indication: DEPRESSION
  4. LORTAB [Suspect]
     Indication: PAIN
  5. IMODIUM [Suspect]
     Indication: DIARRHOEA
  6. SKELAXIN [Suspect]
     Indication: MUSCLE RELAXANT THERAPY
  7. OXYCONTIN [Suspect]
     Indication: PAIN
  8. PHENERGAN ^AVENTIS PHARMA^ [Suspect]
  9. ACETAMINOPHEN [Concomitant]
  10. PROZAC [Concomitant]
  11. SYNTHROID [Concomitant]
  12. ATENOLOL [Concomitant]
  13. MONTELUKAST SODIUM [Concomitant]
  14. RHINOCORT [Concomitant]
  15. NEXIUM [Concomitant]
  16. LASIX [Concomitant]
  17. BENICAR [Concomitant]
  18. INVESTIGATIONAL DRUG [Concomitant]
     Dates: start: 20061110, end: 20061125
  19. ALL OTHER THERAPEUTIC PRODUCTS [Concomitant]
     Indication: BACK PAIN

REACTIONS (11)
  - ANOREXIA [None]
  - BACK PAIN [None]
  - COMPRESSION FRACTURE [None]
  - DIARRHOEA [None]
  - FALL [None]
  - FATIGUE [None]
  - INTERVERTEBRAL DISC DISORDER [None]
  - NAUSEA [None]
  - ORAL INTAKE REDUCED [None]
  - OSTEOARTHRITIS [None]
  - VOMITING [None]
